FAERS Safety Report 4674720-8 (Version None)
Quarter: 2005Q2

REPORT INFORMATION
  Report Type: 
  Country: None (occurrence: None)
  Receive Date: 20050526
  Receipt Date: 20050519
  Transmission Date: 20051028
  Serious: Yes (Other)
  Sender: FDA-Public Use
  Company Number: PHBS2005JP07324

PATIENT
  Age: 41 Year

DRUGS (2)
  1. DIOVAN [Suspect]
     Dosage: 240 MG, UNK
     Route: 048
  2. NORVASC [Suspect]
     Dosage: 45 MG, UNK
     Route: 048

REACTIONS (4)
  - ASTHENIA [None]
  - DEPRESSED LEVEL OF CONSCIOUSNESS [None]
  - OVERDOSE [None]
  - SUICIDE ATTEMPT [None]
